FAERS Safety Report 9006383 (Version 1)
Quarter: 2013Q1

REPORT INFORMATION
  Report Type: Spontaneous
  Country: US (occurrence: US)
  Receive Date: 20130110
  Receipt Date: 20130110
  Transmission Date: 20140127
  Serious: Yes (Life-Threatening)
  Sender: FDA-Public Use
  Company Number: US-009507513-1012USA00435

PATIENT
  Age: 27 Year
  Sex: Male
  Weight: 68.39 kg

DRUGS (2)
  1. SINGULAIR [Suspect]
     Indication: ASTHMA
     Dosage: 10 MG ONE TABLET, QD
     Route: 048
     Dates: start: 19980101, end: 20060101
  2. SINGULAIR [Suspect]
     Indication: MULTIPLE ALLERGIES
     Dosage: 10 MG, QD
     Route: 048
     Dates: start: 20081215, end: 20090101

REACTIONS (3)
  - Suicidal ideation [Unknown]
  - Depression [Unknown]
  - Drug dependence [Unknown]
